FAERS Safety Report 7011843-2 (Version None)
Quarter: 2010Q3

REPORT INFORMATION
  Report Type: 
  Country: None (occurrence: None)
  Receive Date: 20100923
  Receipt Date: 20090824
  Transmission Date: 20110219
  Serious: No
  Sender: FDA-Public Use
  Company Number: US-WYE-H10719509

PATIENT
  Age: 68 Year
  Sex: Male
  Weight: 108.96 kg

DRUGS (2)
  1. ADVIL COLD AND SINUS [Suspect]
     Indication: RHINORRHOEA
     Dosage: 2 CAPLETS EVERY 4 HOURS
     Route: 048
     Dates: start: 20090822, end: 20090822
  2. DIOVAN [Concomitant]

REACTIONS (5)
  - ABDOMINAL DISTENSION [None]
  - ABDOMINAL PAIN UPPER [None]
  - DIARRHOEA [None]
  - INFECTION [None]
  - OVERDOSE [None]
